FAERS Safety Report 4754028-2 (Version None)
Quarter: 2005Q3

REPORT INFORMATION
  Report Type: 
  Country: None (occurrence: None)
  Receive Date: 20050826
  Receipt Date: 20050414
  Transmission Date: 20060218
  Serious: Yes (Other)
  Sender: FDA-Public Use
  Company Number: US-MERCK-0504USA02831

PATIENT
  Age: 60 Year
  Sex: Male
  Weight: 73 kg

DRUGS (5)
  1. VIOXX [Suspect]
     Indication: ARTHRITIS
     Route: 048
     Dates: start: 19991117, end: 20031001
  2. VIOXX [Suspect]
     Route: 048
     Dates: start: 19991117, end: 20031001
  3. PLENDIL [Concomitant]
     Indication: HYPERTENSION
     Route: 048
     Dates: start: 19970801, end: 20001001
  4. LOTREL [Concomitant]
     Route: 048
     Dates: start: 20001001, end: 20030901
  5. CYCLOBENZAPRINE HYDROCHLORIDE [Concomitant]
     Route: 048

REACTIONS (4)
  - ARTERIAL DISORDER [None]
  - BLOOD CHOLESTEROL INCREASED [None]
  - CHEST PAIN [None]
  - CORONARY ARTERY DISEASE [None]
